FAERS Safety Report 23816340 (Version 5)
Quarter: 2025Q3

REPORT INFORMATION
  Report Type: Report from Study
  Country: CN (occurrence: CN)
  Receive Date: 20240503
  Receipt Date: 20250927
  Transmission Date: 20251021
  Serious: Yes (Other)
  Sender: ABBVIE
  Company Number: CN-ABBVIE-5743123

PATIENT
  Age: 43 Year
  Sex: Male
  Weight: 90 kg

DRUGS (18)
  1. RINVOQ [Suspect]
     Active Substance: UPADACITINIB
     Indication: Dermatitis atopic
     Dosage: FORM STRENGTH: 15 MILLIGRAM
     Route: 048
     Dates: start: 202308, end: 20240802
  2. DUPILUMAB [Concomitant]
     Active Substance: DUPILUMAB
     Indication: Dermatitis atopic
     Dosage: ROA: SUBCUTANEOUS
     Route: 065
     Dates: start: 20240408, end: 20240408
  3. DIPROSPAN [Concomitant]
     Active Substance: BETAMETHASONE DIPROPIONATE\BETAMETHASONE SODIUM PHOSPHATE
     Indication: Dermatitis atopic
     Route: 065
     Dates: start: 2015
  4. DIPROSPAN [Concomitant]
     Active Substance: BETAMETHASONE DIPROPIONATE\BETAMETHASONE SODIUM PHOSPHATE
     Indication: Dermatitis atopic
     Dates: start: 202401
  5. LEVOCETIRIZINE DIHYDROCHLORIDE [Concomitant]
     Active Substance: LEVOCETIRIZINE DIHYDROCHLORIDE
     Indication: Dermatitis atopic
     Route: 048
     Dates: start: 20240317
  6. BUDESONIDE\FORMOTEROL FUMARATE [Concomitant]
     Active Substance: BUDESONIDE\FORMOTEROL FUMARATE
     Indication: Asthma
     Dates: start: 2014
  7. BUDESONIDE\FORMOTEROL FUMARATE [Concomitant]
     Active Substance: BUDESONIDE\FORMOTEROL FUMARATE
     Indication: Asthma
     Dosage: 2 PUFF?BUDENOSIDE FORMOTEROL INHALATION POWDER?ROA: RESPIRATORY (INHALATION)
     Route: 065
     Dates: start: 20241222, end: 20241229
  8. HALCINONIDE [Concomitant]
     Active Substance: HALCINONIDE
     Indication: Seborrhoeic dermatitis
     Dosage: SOLUTION?ROA: TOPICAL
     Dates: start: 20240206, end: 20240312
  9. CLINDAMYCIN HYDROCHLORIDE [Concomitant]
     Active Substance: CLINDAMYCIN HYDROCHLORIDE
     Indication: Seborrhoeic dermatitis
     Dosage: INJECTION
     Route: 065
     Dates: start: 20240206, end: 20240312
  10. ALCOHOL [Concomitant]
     Active Substance: ALCOHOL
     Indication: Seborrhoeic dermatitis
     Dosage: 75% ALCOHOL?ROA: TOPICAL
     Route: 065
     Dates: start: 20240206, end: 20240312
  11. PIMECROLIMUS [Concomitant]
     Active Substance: PIMECROLIMUS
     Indication: Dermatitis atopic
     Dosage: 1 GRAM?ROA: TOPICAL
     Route: 065
     Dates: start: 20240408
  12. TRIAMCINOLONE [Concomitant]
     Active Substance: TRIAMCINOLONE
     Indication: Dermatitis atopic
     Route: 048
     Dates: start: 20240206, end: 20240302
  13. FLUCONAZOLE [Concomitant]
     Active Substance: FLUCONAZOLE
     Indication: Seborrhoeic dermatitis
     Dosage: ROA: TOPICAL
     Route: 065
     Dates: start: 20240206, end: 20240312
  14. CYPROHEPTADINE HYDROCHLORIDE [Concomitant]
     Active Substance: CYPROHEPTADINE HYDROCHLORIDE
     Indication: Dermatitis atopic
     Route: 048
     Dates: start: 20240317, end: 20240331
  15. TACROLIMUS [Concomitant]
     Active Substance: TACROLIMUS
     Indication: Dermatitis atopic
     Dosage: OINTMENT?ROA: TOPICAL
     Route: 065
     Dates: start: 20241202
  16. DESONIDE [Concomitant]
     Active Substance: DESONIDE
     Indication: Dermatitis atopic
     Dosage: ROA: TOPICAL
     Route: 065
     Dates: start: 20250114
  17. KETOCONAZOLE [Concomitant]
     Active Substance: KETOCONAZOLE
     Indication: Dermatitis atopic
     Dosage: WASH
     Dates: start: 20250317, end: 20250324
  18. DINOPROSTONE [Concomitant]
     Active Substance: DINOPROSTONE
     Indication: Dermatitis atopic
     Dosage: DINOPROSTONE CREAM?R: TOPICAL
     Route: 065
     Dates: start: 20250114

REACTIONS (3)
  - Renal failure [Unknown]
  - Hyperlipidaemia [Recovered/Resolved]
  - Urticaria [Recovered/Resolved]

NARRATIVE: CASE EVENT DATE: 20240317
